FAERS Safety Report 9281570 (Version 2)
Quarter: 2013Q2

REPORT INFORMATION
  Report Type: Spontaneous
  Country: IT (occurrence: IT)
  Receive Date: 20130509
  Receipt Date: 20130521
  Transmission Date: 20140414
  Serious: Yes (Hospitalization)
  Sender: FDA-Public Use
  Company Number: IT-TEVA-403375ISR

PATIENT
  Age: 72 Year
  Sex: Male
  Weight: 83 kg

DRUGS (2)
  1. CISPLATINO TEVA ITALIA [Suspect]
     Indication: NEUROENDOCRINE CARCINOMA
     Dosage: 49.5 MILLIGRAM DAILY;
     Route: 042
     Dates: start: 20130405, end: 20130407
  2. ETOPOSIDE TEVA [Suspect]
     Indication: NEUROENDOCRINE CARCINOMA
     Dosage: 198 MILLIGRAM DAILY;
     Route: 042
     Dates: start: 20130405, end: 20130407

REACTIONS (3)
  - Pyrexia [Recovered/Resolved]
  - Oropharyngeal pain [Recovered/Resolved]
  - Vomiting [Recovered/Resolved]
